FAERS Safety Report 5598707-6 (Version None)
Quarter: 2008Q1

REPORT INFORMATION
  Report Type: 
  Country: None (occurrence: None)
  Receive Date: 20080122
  Receipt Date: 20071211
  Transmission Date: 20080703
  Serious: No
  Sender: FDA-Public Use
  Company Number: PT-ELI_LILLY_AND_COMPANY-PT200801003370

PATIENT
  Sex: Female

DRUGS (4)
  1. OLANZAPINE [Suspect]
     Dosage: 15 MG, DAILY (1/D)
     Dates: start: 20070701
  2. OLANZAPINE [Suspect]
     Dosage: 10 MG, DAILY (1/D)
  3. ZOLOFT [Concomitant]
  4. DEPAKENE [Concomitant]

REACTIONS (1)
  - PLATELET COUNT DECREASED [None]
